FAERS Safety Report 8511497-X (Version None)
Quarter: 2012Q3

REPORT INFORMATION
  Report Type: 
  Country: None (occurrence: None)
  Receive Date: 20120716
  Receipt Date: 20120709
  Transmission Date: 20120928
  Serious: Yes (Hospitalization)
  Sender: FDA-Public Use
  Company Number: US-TEVA-347749USA

PATIENT
  Age: 54 Year
  Sex: Male

DRUGS (6)
  1. DOXORUBICIN HCL [Concomitant]
     Indication: SARCOMA METASTATIC
     Dosage: 55MG (25 MG/M2) ON DAYS 1-3 IN CYCLES 1 AND 2 (21-DAY CYCLES)
     Route: 065
  2. IFOSFAMIDE [Suspect]
     Indication: SARCOMA METASTATIC
     Dosage: 5.5G (2.5 G/M2) ON DAYS 1-4 IN CYCLES 1 AND 2 (21-DAY CYCLES)
     Route: 065
  3. MESNA [Concomitant]
     Route: 065
  4. IFOSFAMIDE [Suspect]
     Dosage: 5G IN CYCLES 3 AND 4 WITH SLIGHTLY LENGTHENED CYCLES
     Route: 065
  5. DOXORUBICIN HCL [Concomitant]
     Dosage: 50MG IN CYCLES 3 AND 4 WITH SLIGHTLY LENGTHENED CYCLES
     Route: 065
  6. DEXRAZOXANE HYDROCHLORIDE [Concomitant]
     Route: 065

REACTIONS (2)
  - FANCONI SYNDROME [None]
  - NEPHROGENIC DIABETES INSIPIDUS [None]
